FAERS Safety Report 9197387 (Version 3)
Quarter: 2013Q2

REPORT INFORMATION
  Report Type: Spontaneous
  Country: CA (occurrence: CA)
  Receive Date: 20130328
  Receipt Date: 20130606
  Transmission Date: 20140414
  Serious: Yes (Other)
  Sender: FDA-Public Use
  Company Number: CA-GLAXOSMITHKLINE-A1016394A

PATIENT
  Age: 57 Year
  Sex: Female

DRUGS (8)
  1. TYKERB [Suspect]
     Indication: BREAST CANCER METASTATIC
     Dosage: 1500MG PER DAY
     Route: 048
     Dates: start: 20120308, end: 20130502
  2. LETROZOLE [Suspect]
     Indication: PRODUCT USED FOR UNKNOWN INDICATION
     Route: 065
  3. XELODA [Suspect]
     Indication: PRODUCT USED FOR UNKNOWN INDICATION
     Dosage: 1500MG TWICE PER DAY
     Route: 065
  4. NEXIUM [Concomitant]
  5. COUMADIN [Concomitant]
  6. DILTIAZEM [Concomitant]
  7. ATIVAN [Concomitant]
  8. STATEX [Concomitant]

REACTIONS (2)
  - Breast cancer metastatic [Not Recovered/Not Resolved]
  - Blood test abnormal [Not Recovered/Not Resolved]
